FAERS Safety Report 6196141-1 (Version None)
Quarter: 2009Q2

REPORT INFORMATION
  Report Type: 
  Country: None (occurrence: None)
  Receive Date: 20090520
  Receipt Date: 20090512
  Transmission Date: 20091009
  Serious: Yes (Hospitalization)
  Sender: FDA-Public Use
  Company Number: US-BIOGENIDEC-2009BI000614

PATIENT
  Age: 71 Year
  Sex: Female

DRUGS (11)
  1. AVONEX [Suspect]
     Indication: MULTIPLE SCLEROSIS
     Route: 030
     Dates: start: 19980501
  2. AVONEX [Suspect]
     Route: 030
     Dates: start: 20010502
  3. METFORMIN HCL [Concomitant]
     Indication: DRUG USE FOR UNKNOWN INDICATION
  4. ACTOS [Concomitant]
     Indication: DRUG USE FOR UNKNOWN INDICATION
  5. ASPIRIN [Concomitant]
     Indication: DRUG USE FOR UNKNOWN INDICATION
  6. AVANDIA [Concomitant]
     Indication: DRUG USE FOR UNKNOWN INDICATION
  7. CARTIA XT [Concomitant]
     Indication: DRUG USE FOR UNKNOWN INDICATION
  8. PRAVASTATIN [Concomitant]
     Indication: DRUG USE FOR UNKNOWN INDICATION
  9. MULTIPLE ORAL VITAMIN [Concomitant]
     Indication: DRUG USE FOR UNKNOWN INDICATION
  10. OYSTER SHELL [Concomitant]
     Indication: DRUG USE FOR UNKNOWN INDICATION
  11. ANTICONVULSANT TREATMENT NOS [Concomitant]
     Indication: DRUG USE FOR UNKNOWN INDICATION

REACTIONS (5)
  - FALL [None]
  - GASTROINTESTINAL INJURY [None]
  - HAEMATOCHEZIA [None]
  - LOWER LIMB FRACTURE [None]
  - RETROPERITONEAL HAEMORRHAGE [None]
